FAERS Safety Report 10575612 (Version 4)
Quarter: 2015Q1

REPORT INFORMATION
  Report Type: Spontaneous
  Country: US (occurrence: US)
  Receive Date: 20141111
  Receipt Date: 20150121
  Transmission Date: 20150720
  Serious: No
  Sender: FDA-Public Use
  Company Number: US-PFIZER INC-2014306114

PATIENT
  Age: 81 Year
  Sex: Male
  Weight: 69 kg

DRUGS (15)
  1. SIMVASTATIN. [Concomitant]
     Active Substance: SIMVASTATIN
     Dosage: 20 MG, 1X/DAY
  2. ARICEPT [Concomitant]
     Active Substance: DONEPEZIL HYDROCHLORIDE
     Dosage: 10 MG, 1X/DAY
  3. HYDROCHLOROTHIAZIDE. [Concomitant]
     Active Substance: HYDROCHLOROTHIAZIDE
     Dosage: 25 MG, 1X/DAY
  4. ASPIRIN. [Concomitant]
     Active Substance: ASPIRIN
     Dosage: 325 MG, 1X/DAY
  5. FLOMAX [Concomitant]
     Active Substance: TAMSULOSIN HYDROCHLORIDE
     Dosage: 0.4 MG, 1X/DAY
  6. NAMENDA [Concomitant]
     Active Substance: MEMANTINE HYDROCHLORIDE
     Dosage: 7 MG, 1X/DAY
  7. TRAVATAN [Concomitant]
     Active Substance: TRAVOPROST
     Dosage: 1 DF, 1X/DAY (.004 % OPHTH. SOLUTION-ONE DROP IN BOTH EYES ONCE EVERY EVENING)
  8. AZOPT [Concomitant]
     Active Substance: BRINZOLAMIDE
     Dosage: UNK, 1X/DAY (1% OPHTH SOLUTION- ONE DROP IN RIGHT EYE)
  9. LYRICA [Suspect]
     Active Substance: PREGABALIN
     Indication: NEURALGIA
     Dosage: 50 MG, 2X/DAY
     Route: 048
     Dates: start: 20141028, end: 201412
  10. LYRICA [Suspect]
     Active Substance: PREGABALIN
     Indication: SCIATICA
  11. ENALAPRIL [Concomitant]
     Active Substance: ENALAPRIL
     Dosage: 20 MG, 1X/DAY
  12. LEXAPRO [Concomitant]
     Active Substance: ESCITALOPRAM OXALATE
     Dosage: 5 MG, 1X/DAY
  13. AMLODIPINE [Concomitant]
     Active Substance: AMLODIPINE BESYLATE
     Dosage: 10 MG, 1X/DAY
  14. HYDOCODONE-ACETAMINOPHEN [Concomitant]
     Dosage: UNK, AS NEEDED (HYDROCODONE 10- ACETAMINOPHEN 325, 1 TABLET EVERY 4-6 HOURS)
  15. HYDOCODONE-ACETAMINOPHEN [Concomitant]
     Dosage: UNK (TAKES 1/2 ON 1 TABLET AT BEDTIME)

REACTIONS (1)
  - Rash [Recovering/Resolving]

NARRATIVE: CASE EVENT DATE: 20141103
